FAERS Safety Report 13338341 (Version 3)
Quarter: 2017Q2

REPORT INFORMATION
  Report Type: Spontaneous
  Country: US (occurrence: US)
  Receive Date: 20170315
  Receipt Date: 20170524
  Transmission Date: 20170830
  Serious: Yes (Hospitalization)
  Sender: FDA-Public Use
  Company Number: US-BAYER-2017-049177

PATIENT
  Age: 30 Year
  Sex: Female
  Weight: 56.69 kg

DRUGS (1)
  1. MIRENA [Suspect]
     Active Substance: LEVONORGESTREL
     Indication: CONTRACEPTION
     Dosage: 20 MCG/24HR, CONT
     Route: 015
     Dates: start: 20140723, end: 20160122

REACTIONS (6)
  - Device difficult to use [None]
  - Device issue [None]
  - Menstruation irregular [None]
  - Device dislocation [None]
  - Vulvar erosion [None]
  - Genital haemorrhage [None]

NARRATIVE: CASE EVENT DATE: 20140822
